FAERS Safety Report 6504297-3 (Version None)
Quarter: 2009Q4

REPORT INFORMATION
  Report Type: 
  Country: None (occurrence: None)
  Receive Date: 20091217
  Receipt Date: 20091120
  Transmission Date: 20100525
  Serious: Yes (Hospitalization, Other)
  Sender: FDA-Public Use
  Company Number: US-BRISTOL-MYERS SQUIBB COMPANY-13419080

PATIENT
  Age: 89 Year
  Sex: Male
  Weight: 83 kg

DRUGS (15)
  1. IRBESARTAN [Suspect]
     Indication: HYPERTENSION
     Dates: start: 20041130
  2. CLOPIDOGREL BISULFATE [Suspect]
     Indication: PROPHYLAXIS
     Dates: start: 20041130
  3. ASPIRIN [Suspect]
     Indication: PROPHYLAXIS
     Dates: start: 20041130, end: 20060802
  4. DIGOXIN [Suspect]
     Indication: CARDIAC DISORDER
     Route: 048
  5. WARFARIN SODIUM [Concomitant]
     Dates: end: 20060803
  6. CARVEDILOL [Concomitant]
     Route: 048
  7. FINASTERIDE [Concomitant]
     Indication: PROSTATIC DISORDER
  8. FOLIC ACID [Concomitant]
     Route: 048
  9. FUROSEMIDE [Concomitant]
     Indication: FLUID RETENTION
     Route: 048
  10. FUROSEMIDE [Concomitant]
     Indication: BLOOD PRESSURE
     Route: 048
  11. NOVOLIN 70/30 [Concomitant]
     Indication: DIABETES MELLITUS
     Route: 058
  12. LISINOPRIL [Concomitant]
     Route: 048
  13. METOLAZONE [Concomitant]
     Dosage: PRIOR TO LASIX
     Route: 048
  14. RANITIDINE [Concomitant]
     Indication: GASTRIC DISORDER
     Route: 048
  15. SIMVASTATIN [Concomitant]
     Indication: BLOOD CHOLESTEROL

REACTIONS (4)
  - GASTROENTERITIS [None]
  - RENAL FAILURE [None]
  - RETROPERITONEAL HAEMATOMA [None]
  - THERAPEUTIC AGENT TOXICITY [None]
